FAERS Safety Report 6585972-1 (Version None)
Quarter: 2010Q1

REPORT INFORMATION
  Report Type: 
  Country: None (occurrence: None)
  Receive Date: 20100217
  Receipt Date: 20100209
  Transmission Date: 20100710
  Serious: Yes (Death)
  Sender: FDA-Public Use
  Company Number: US-ROXANE LABORATORIES, INC.-2010-DE-00811GD

PATIENT
  Age: 18 Year
  Sex: Male

DRUGS (3)
  1. PARACETAMOL [Suspect]
     Route: 048
  2. METHADONE HCL [Suspect]
     Route: 048
  3. OPIOID [Suspect]
     Route: 048

REACTIONS (2)
  - COMPLETED SUICIDE [None]
  - DRUG ABUSE [None]
